FAERS Safety Report 9388469 (Version 2)
Quarter: 2015Q1

REPORT INFORMATION
  Report Type: Spontaneous
  Country: US (occurrence: US)
  Receive Date: 20130708
  Receipt Date: 20150327
  Transmission Date: 20150721
  Serious: No
  Sender: FDA-Public Use
  Company Number: US-ASTRAZENECA-2013SE46629

PATIENT
  Age: 66 Year
  Sex: Male
  Weight: 92.5 kg

DRUGS (4)
  1. NIASPAN [Concomitant]
     Active Substance: NIACIN
     Indication: CARDIAC FAILURE CONGESTIVE
  2. ALBUTEROL. [Suspect]
     Active Substance: ALBUTEROL
     Route: 065
  3. EYE DROPS [Concomitant]
     Active Substance: TETRAHYDROZOLINE HYDROCHLORIDE
     Indication: GLAUCOMA
  4. SYMBICORT [Suspect]
     Active Substance: BUDESONIDE\FORMOTEROL FUMARATE DIHYDRATE
     Indication: DYSPNOEA
     Dosage: 80-4.5, BID2 PUFFS.
     Route: 055
     Dates: start: 20130506

REACTIONS (8)
  - Nasal congestion [Unknown]
  - Rhinorrhoea [Unknown]
  - Productive cough [Unknown]
  - Intentional product misuse [Unknown]
  - Drug prescribing error [Unknown]
  - Nasopharyngitis [Unknown]
  - Dysphonia [Unknown]
  - Cough [Unknown]

NARRATIVE: CASE EVENT DATE: 201305
